FAERS Safety Report 7830659-8 (Version None)
Quarter: 2011Q4

REPORT INFORMATION
  Report Type: 
  Country: None (occurrence: None)
  Receive Date: 20111021
  Receipt Date: 20111014
  Transmission Date: 20120403
  Serious: Yes (Hospitalization, Other)
  Sender: FDA-Public Use
  Company Number: NO-PFIZER INC-2008085666

PATIENT
  Age: 47 Year
  Sex: Female

DRUGS (2)
  1. PROVERA [Suspect]
     Dosage: 40 MG, 1X/DAY
     Route: 048
     Dates: start: 20080101
  2. PROVERA [Suspect]
     Indication: ENDOMETRIOSIS
     Dosage: DAILY
     Route: 048
     Dates: start: 19920101

REACTIONS (2)
  - TRANSIENT ISCHAEMIC ATTACK [None]
  - CONVULSION [None]
